FAERS Safety Report 7462845-3 (Version None)
Quarter: 2011Q1

REPORT INFORMATION
  Report Type: 
  Country: None (occurrence: None)
  Receive Date: 20110302
  Receipt Date: 20101208
  Transmission Date: 20110831
  Serious: Yes (Hospitalization)
  Sender: FDA-Public Use
  Company Number: 163-21880-10111675

PATIENT
  Age: 62 Year
  Sex: Male

DRUGS (9)
  1. TURMERIC (TURMERIC) [Concomitant]
  2. MULTIVITAMIN [Concomitant]
  3. CO Q-10 (UBIDECARENONE) [Concomitant]
  4. REVLIMID [Suspect]
     Indication: MULTIPLE MYELOMA
     Dosage: 25 MG, DAILY FOR 21 DAYS EVERY 28 DAY CYCLE, PO
     Route: 048
     Dates: start: 20101014, end: 20101207
  5. FISH OIL (FISH OIL) [Concomitant]
  6. METFORMIN (METFORMIN) [Concomitant]
  7. THISILYN (HERBAL PREPARATION) [Concomitant]
  8. DECADRON [Suspect]
     Indication: PRODUCT USED FOR UNKNOWN INDICATION
  9. PRILOSEC [Concomitant]

REACTIONS (4)
  - ATRIAL FIBRILLATION [None]
  - NIGHT SWEATS [None]
  - PALPITATIONS [None]
  - BLOOD GLUCAGON INCREASED [None]
